FAERS Safety Report 14999777 (Version 1)
Quarter: 2018Q2

REPORT INFORMATION
  Report Type: Spontaneous
  Country: US (occurrence: US)
  Receive Date: 20180521
  Receipt Date: 20180521
  Transmission Date: 20180711
  Serious: Yes (Hospitalization)
  Sender: FDA-Public Use
  Company Number: None

PATIENT
  Age: 72 Year
  Sex: Female

DRUGS (12)
  1. HYDROCHLOROTHIAZIDE. [Concomitant]
     Active Substance: HYDROCHLOROTHIAZIDE
  2. LASIX [Concomitant]
     Active Substance: FUROSEMIDE
  3. METOPROLOL. [Concomitant]
     Active Substance: METOPROLOL
  4. CRESTOR [Concomitant]
     Active Substance: ROSUVASTATIN CALCIUM
  5. ENOXAPARIN [Concomitant]
     Active Substance: ENOXAPARIN
  6. WARFARIN [Concomitant]
     Active Substance: WARFARIN
  7. LEUKERAN [Suspect]
     Active Substance: CHLORAMBUCIL
     Indication: HODGKIN^S DISEASE
     Dosage: OTHER DOSE:FIVE 2 MG ;?
     Route: 048
     Dates: start: 20180405
  8. PREDNISONE. [Suspect]
     Active Substance: PREDNISONE
     Indication: HODGKIN^S DISEASE
     Dosage: ?          OTHER DOSE:ONE 2 MG ;?
     Route: 048
     Dates: start: 20180405
  9. AMLODIPINE [Concomitant]
     Active Substance: AMLODIPINE BESYLATE
  10. VITAMIN D [Concomitant]
     Active Substance: CHOLECALCIFEROL
  11. POTASSIUM [Concomitant]
     Active Substance: POTASSIUM
  12. VITAMIN B12 [Concomitant]
     Active Substance: CYANOCOBALAMIN

REACTIONS (1)
  - Heart rate decreased [None]
